FAERS Safety Report 24292223 (Version 1)
Quarter: 2024Q3

REPORT INFORMATION
  Report Type: Spontaneous
  Country: US (occurrence: None)
  Receive Date: 20240906
  Receipt Date: 20240906
  Transmission Date: 20241017
  Serious: No
  Sender: DOMPE FARMACEUTICI
  Company Number: US-FARMAPROD-202307-2063

PATIENT
  Age: 75 Year
  Sex: Female
  Weight: 53.98 kg

DRUGS (20)
  1. OXERVATE [Suspect]
     Active Substance: CENEGERMIN-BKBJ
     Indication: Neurotrophic keratopathy
     Route: 047
     Dates: start: 20230708
  2. OXERVATE [Suspect]
     Active Substance: CENEGERMIN-BKBJ
  3. OXERVATE [Suspect]
     Active Substance: CENEGERMIN-BKBJ
  4. SYSTANE GEL [Concomitant]
     Dosage: 0.3 %-0.4%
     Dates: start: 20230116
  5. SYSTANE ULTRA [Concomitant]
     Active Substance: POLYETHYLENE GLYCOL 400\PROPYLENE GLYCOL
     Dosage: 0.3 %-0.4%
  6. UNSPECIFIED INGREDIENT [Concomitant]
     Active Substance: UNSPECIFIED INGREDIENT
     Dosage: 0.05 %
  7. FISH OIL [Concomitant]
     Active Substance: FISH OIL
     Dosage: 28.5-113.5
  8. VITAMIN B12 [Concomitant]
     Active Substance: CYANOCOBALAMIN
     Dosage: RAPID RELEASE
  9. CALCIUM CITRATE [Concomitant]
     Active Substance: CALCIUM CITRATE
  10. VITAMIN D3 [Concomitant]
     Active Substance: CHOLECALCIFEROL
  11. ESTRADIOL [Concomitant]
     Active Substance: ESTRADIOL
  12. ROSUVASTATIN CALCIUM [Concomitant]
     Active Substance: ROSUVASTATIN CALCIUM
  13. PILOCARPINE HYDROCHLORIDE [Concomitant]
     Active Substance: PILOCARPINE HYDROCHLORIDE
  14. LISINOPRIL [Concomitant]
     Active Substance: LISINOPRIL
  15. LEVOTHYROXINE SODIUM [Concomitant]
     Active Substance: LEVOTHYROXINE SODIUM
  16. KEPPRA [Concomitant]
     Active Substance: LEVETIRACETAM
  17. PLAQUENIL [Concomitant]
     Active Substance: HYDROXYCHLOROQUINE SULFATE
  18. AMLODIPINE BESYLATE [Concomitant]
     Active Substance: AMLODIPINE BESYLATE
  19. GABA/LIDO/MELOX/PRILO [Concomitant]
     Dosage: 2.5-2.5-0.099-2.5 %
  20. SALAGEN [Concomitant]
     Active Substance: PILOCARPINE HYDROCHLORIDE
     Route: 048
     Dates: start: 20221222

REACTIONS (5)
  - Eye pain [Unknown]
  - Eye irritation [Recovered/Resolved]
  - Product storage error [Unknown]
  - Inappropriate schedule of product administration [Unknown]
  - Wrong technique in product usage process [Recovered/Resolved]

NARRATIVE: CASE EVENT DATE: 20230709
